FAERS Safety Report 10992795 (Version 3)
Quarter: 2016Q3

REPORT INFORMATION
  Report Type: Spontaneous
  Country: US (occurrence: US)
  Receive Date: 20150406
  Receipt Date: 20160701
  Transmission Date: 20161109
  Serious: Yes (Hospitalization, Disabling, Other)
  Sender: FDA-Public Use
  Company Number: US-JNJFOC-20140104859

PATIENT
  Age: 49 Year
  Sex: Male
  Weight: 110.22 kg

DRUGS (3)
  1. REMICADE [Suspect]
     Active Substance: INFLIXIMAB
     Indication: PSORIATIC ARTHROPATHY
     Dosage: 552.2 MG, ACCORDING TO PATIENT^S BODT WEIGHT.??THE PATIENT RECEIVED 600 MG.??WEEK 0 AND 2
     Route: 042
     Dates: start: 20131202
  2. LANTUS [Concomitant]
     Active Substance: INSULIN GLARGINE
     Indication: DIABETES MELLITUS
     Route: 065
  3. REMICADE [Suspect]
     Active Substance: INFLIXIMAB
     Indication: PSORIATIC ARTHROPATHY
     Dosage: 552.2 MG, ACCORDING TO PATIENT^S BODT WEIGHT.??THE PATIENT RECEIVED 600 MG.
     Route: 042
     Dates: start: 20131216

REACTIONS (3)
  - Weight decreased [Unknown]
  - Myelopathy [Recovering/Resolving]
  - Decubitus ulcer [Unknown]

NARRATIVE: CASE EVENT DATE: 20131223
